FAERS Safety Report 4892372-9 (Version None)
Quarter: 2006Q1

REPORT INFORMATION
  Report Type: 
  Country: None (occurrence: None)
  Receive Date: 20060123
  Receipt Date: 20060123
  Transmission Date: 20060701
  Serious: Yes (Life-Threatening)
  Sender: FDA-Public Use
  Company Number: None

PATIENT
  Sex: Female
  Weight: 64.6 kg

DRUGS (10)
  1. IMATINIB MESYLATE  100 MG CAPSULES, NOVARITS (GLEEVEC) [Suspect]
     Indication: GLIOBLASTOMA MULTIFORME
     Dosage: 400 MG PO BID X 8 DAYS
     Route: 048
     Dates: start: 20060105, end: 20060110
  2. IMATINIB MESYLATE  100 MG CAPSULES, NOVARITS (GLEEVEC) [Suspect]
     Indication: GLIOBLASTOMA MULTIFORME
     Dosage: 400 MG PO BID X 8 DAYS
     Route: 048
     Dates: start: 20060119, end: 20060121
  3. TEMOZOLOMIDE, SCHERING-PLOUGH [Suspect]
     Indication: GLIOBLASTOMA MULTIFORME
     Dosage: 350 MG PO Q PM X 5 DAYS
     Route: 048
     Dates: start: 20060105, end: 20060109
  4. TEMOZOLOMIDE, SCHERING-PLOUGH [Suspect]
     Indication: GLIOBLASTOMA MULTIFORME
     Dosage: 350 MG PO Q PM X 5 DAYS
     Route: 048
     Dates: start: 20060119, end: 20060121
  5. KEPPRA [Concomitant]
  6. SALT TABLETS [Concomitant]
  7. SLO IRON [Concomitant]
  8. AMBIEN [Concomitant]
  9. IMODIUM [Concomitant]
  10. ARANESP [Concomitant]

REACTIONS (4)
  - LEUKOPENIA [None]
  - NEUTROPENIA [None]
  - NEUTROPHIL COUNT INCREASED [None]
  - WHITE BLOOD CELL COUNT INCREASED [None]
